FAERS Safety Report 10004786 (Version 1)
Quarter: 2014Q1

REPORT INFORMATION
  Report Type: Spontaneous
  Country: GR (occurrence: GR)
  Receive Date: 20140312
  Receipt Date: 20140312
  Transmission Date: 20141002
  Serious: Yes (Hospitalization)
  Sender: FDA-Public Use
  Company Number: GR-GLAXOSMITHKLINE-B0975463A

PATIENT
  Age: 63 Year
  Sex: Female

DRUGS (1)
  1. VOTRIENT [Suspect]
     Indication: LEIOMYOSARCOMA
     Route: 065

REACTIONS (4)
  - Pulmonary embolism [Unknown]
  - Hepatic enzyme increased [Unknown]
  - Hypertension [Unknown]
  - Haemoptysis [Unknown]
